FAERS Safety Report 14305745 (Version 1)
Quarter: 2017Q4

REPORT INFORMATION
  Report Type: Spontaneous
  Country: US (occurrence: US)
  Receive Date: 20171219
  Receipt Date: 20171219
  Transmission Date: 20180321
  Serious: No
  Sender: FDA-Public Use
  Company Number: US-DRREDDYS-USA/USA/17/0093347

PATIENT
  Age: 67 Year
  Sex: Female
  Weight: 63.5 kg

DRUGS (3)
  1. FLUCONAZOLE. [Suspect]
     Active Substance: FLUCONAZOLE
     Indication: FUNGAL INFECTION
     Dosage: ONE EVERY OTHER DAY, THEN EVERY DAY
     Route: 048
     Dates: start: 20170724, end: 20170801
  2. OMEPRAZOLE. [Suspect]
     Active Substance: OMEPRAZOLE
     Indication: PRODUCT USED FOR UNKNOWN INDICATION
     Route: 065
     Dates: end: 20170729
  3. NEXIUM [Suspect]
     Active Substance: ESOMEPRAZOLE MAGNESIUM
     Indication: GASTROOESOPHAGEAL REFLUX DISEASE
     Route: 048
     Dates: start: 20170729

REACTIONS (9)
  - Weight decreased [Not Recovered/Not Resolved]
  - Stomatitis [Unknown]
  - Drug dose omission [Unknown]
  - Vulvovaginal burning sensation [Not Recovered/Not Resolved]
  - Flushing [Not Recovered/Not Resolved]
  - Eye irritation [Not Recovered/Not Resolved]
  - Pharyngeal hypoaesthesia [Unknown]
  - Oropharyngeal pain [Not Recovered/Not Resolved]
  - Chills [Not Recovered/Not Resolved]

NARRATIVE: CASE EVENT DATE: 201707
